FAERS Safety Report 7631016 (Version 3)
Quarter: 2014Q1

REPORT INFORMATION
  Report Type: Report from Study
  Country: KR (occurrence: KR)
  Receive Date: 20101015
  Receipt Date: 20140219
  Transmission Date: 20141002
  Serious: Yes (Death, Other)
  Sender: FDA-Public Use
  Company Number: KR-JNJFOC-20101000887

PATIENT
  Age: 29 Year
  Sex: Male
  Weight: 53.8 kg

DRUGS (7)
  1. REMICADE [Suspect]
     Indication: CROHN^S DISEASE
     Route: 042
     Dates: start: 20100202, end: 20100202
  2. SOLU MEDROL [Concomitant]
     Indication: CROHN^S DISEASE
     Route: 042
     Dates: start: 20100123, end: 20100207
  3. SOLU MEDROL [Concomitant]
     Indication: CROHN^S DISEASE
     Route: 042
     Dates: start: 20100208, end: 20100216
  4. SOLU MEDROL [Concomitant]
     Indication: CROHN^S DISEASE
     Route: 042
     Dates: start: 20100120, end: 20100122
  5. SOLU MEDROL [Concomitant]
     Indication: CROHN^S DISEASE
     Route: 042
     Dates: start: 20100105, end: 20100119
  6. PREDNISOLONE [Concomitant]
     Indication: CROHN^S DISEASE
     Route: 048
     Dates: start: 20091216, end: 20100105
  7. PENTASA [Concomitant]
     Indication: CROHN^S DISEASE
     Route: 048
     Dates: start: 20090525, end: 20100105

REACTIONS (3)
  - Septic shock [Fatal]
  - Pneumonia [Fatal]
  - Bacteraemia [Fatal]
